FAERS Safety Report 14802481 (Version 1)
Quarter: 2018Q2

REPORT INFORMATION
  Report Type: Spontaneous
  Country: NO (occurrence: NO)
  Receive Date: 20180424
  Receipt Date: 20180424
  Transmission Date: 20180711
  Serious: Yes (Hospitalization)
  Sender: FDA-Public Use
  Company Number: NO-SAOL THERAPEUTICS-2018SAO00604

PATIENT

DRUGS (2)
  1. BACLOFEN. [Suspect]
     Active Substance: BACLOFEN
     Dosage: 300 ?G, \DAY
     Route: 037
  2. BACLOFEN. [Suspect]
     Active Substance: BACLOFEN
     Dosage: MINIMUM RATE
     Route: 037
     Dates: start: 20180314

REACTIONS (5)
  - Implant site swelling [Recovering/Resolving]
  - Hypotonia [Unknown]
  - Somnolence [Recovering/Resolving]
  - Respiratory rate decreased [Recovering/Resolving]
  - Incorrect route of drug administration [Recovering/Resolving]

NARRATIVE: CASE EVENT DATE: 20180314
